FAERS Safety Report 9122743 (Version 1)
Quarter: 2013Q1

REPORT INFORMATION
  Report Type: Spontaneous
  Country: US (occurrence: None)
  Receive Date: 20130225
  Receipt Date: 20130225
  Transmission Date: 20140127
  Serious: Yes (Life-Threatening, Hospitalization, Other)
  Sender: FDA-Public Use
  Company Number: None

PATIENT
  Age: 48 Year
  Sex: Male
  Weight: 111.13 kg

DRUGS (1)
  1. ZYVOX [Suspect]
     Indication: LOCALISED INFECTION
     Route: 041
     Dates: start: 20130204, end: 20130204

REACTIONS (10)
  - Vomiting [None]
  - Diarrhoea [None]
  - Muscle twitching [None]
  - Disturbance in attention [None]
  - Unevaluable event [None]
  - Haemoglobin decreased [None]
  - Medication error [None]
  - Chills [None]
  - Pulmonary oedema [None]
  - Renal disorder [None]
